FAERS Safety Report 15571379 (Version 1)
Quarter: 2018Q4

REPORT INFORMATION
  Report Type: Report from Study
  Country: US (occurrence: US)
  Receive Date: 20181031
  Receipt Date: 20181031
  Transmission Date: 20190205
  Serious: Yes (Hospitalization, Other)
  Sender: FDA-Public Use
  Company Number: US-TEVA-2018-US-968710

PATIENT
  Sex: Female

DRUGS (2)
  1. COPAXONE [Suspect]
     Active Substance: GLATIRAMER ACETATE
     Indication: MULTIPLE SCLEROSIS
     Route: 058
     Dates: start: 20150127
  2. COPAXONE [Suspect]
     Active Substance: GLATIRAMER ACETATE
     Route: 058
     Dates: start: 20181018

REACTIONS (12)
  - Therapy change [Unknown]
  - Arrhythmia [Unknown]
  - Joint swelling [Unknown]
  - Pleural effusion [Unknown]
  - Dyspnoea [Unknown]
  - Pulmonary hypertension [Unknown]
  - Haemoptysis [Unknown]
  - Cardiac failure congestive [Unknown]
  - Flushing [Unknown]
  - Loss of consciousness [Unknown]
  - Peripheral swelling [Unknown]
  - Amyloidosis [Unknown]

NARRATIVE: CASE EVENT DATE: 2015
